FAERS Safety Report 6523029-6 (Version None)
Quarter: 2009Q4

REPORT INFORMATION
  Report Type: 
  Country: None (occurrence: None)
  Receive Date: 20091222
  Receipt Date: 20091207
  Transmission Date: 20100525
  Serious: Yes (Other)
  Sender: FDA-Public Use
  Company Number: 2009IP000056

PATIENT
  Age: 50 Year
  Sex: Female
  Weight: 63.5036 kg

DRUGS (6)
  1. XIBROM [Suspect]
     Indication: CATARACT OPERATION
     Dosage: 1 GTT; BID; OPH
     Route: 047
     Dates: start: 20090713, end: 20090721
  2. ZYMAR (CON.) [Concomitant]
  3. PRED FORTE (CON.) [Concomitant]
  4. PREDNISONE (CON.) [Concomitant]
  5. ALBUTEROL /00139501/ (CON.) [Concomitant]
  6. LO/OVRAL (CON.) [Concomitant]

REACTIONS (4)
  - CATARACT OPERATION COMPLICATION [None]
  - SCLERAL DISORDER [None]
  - SCLERAL GRAFT [None]
  - WOUND SECRETION [None]
